FAERS Safety Report 13562650 (Version 2)
Quarter: 2017Q2

REPORT INFORMATION
  Report Type: Report from Study
  Country: None (occurrence: US)
  Receive Date: 20170519
  Receipt Date: 20170609
  Transmission Date: 20170830
  Serious: Yes (Hospitalization, Other)
  Sender: FDA-Public Use
  Company Number: US-ABBVIE-17K-163-1924268-00

PATIENT
  Age: 46 Year
  Sex: Female
  Weight: 90.8 kg

DRUGS (2)
  1. HUMIRA [Suspect]
     Active Substance: ADALIMUMAB
     Indication: COLITIS ULCERATIVE
     Dosage: ONE WEEK AFTER 80 MG DOSE
     Route: 058
  2. HUMIRA [Suspect]
     Active Substance: ADALIMUMAB
     Indication: PSORIASIS
     Dosage: LOADING DOSE
     Route: 058

REACTIONS (10)
  - Coronary artery occlusion [Recovered/Resolved]
  - Oropharyngeal pain [Recovered/Resolved]
  - Blood pressure increased [Recovered/Resolved]
  - Blood cholesterol abnormal [Unknown]
  - Blood pressure increased [Recovered/Resolved]
  - Oedema peripheral [Recovered/Resolved]
  - Weight abnormal [Unknown]
  - Decreased activity [Unknown]
  - Skin disorder [Unknown]
  - Myocardial infarction [Recovered/Resolved]

NARRATIVE: CASE EVENT DATE: 201405
